FAERS Safety Report 17896336 (Version 3)
Quarter: 2020Q3

REPORT INFORMATION
  Report Type: Report from Study
  Country: IT (occurrence: IT)
  Receive Date: 20200615
  Receipt Date: 20200810
  Transmission Date: 20201103
  Serious: Yes (Hospitalization, Other)
  Sender: FDA-Public Use
  Company Number: IT-MYLANLABS-2020M1045327

PATIENT
  Age: 81 Year
  Sex: Male
  Weight: 82 kg

DRUGS (13)
  1. FULCROSUPRA [Concomitant]
     Active Substance: FENOFIBRATE
     Dosage: 1 DOSAGE FORM, QD
  2. AMIODARONE [Suspect]
     Active Substance: AMIODARONE
     Dosage: 200 MILLIGRAM, QD
     Route: 048
     Dates: start: 20191107, end: 20200703
  3. ELIQUIS [Concomitant]
     Active Substance: APIXABAN
     Dosage: 2 DOSAGE FORM, QD
  4. FULCROSUPRA [Concomitant]
     Active Substance: FENOFIBRATE
     Dosage: 1 DOSAGE FORM
  5. ZYLORIC [Concomitant]
     Active Substance: ALLOPURINOL
     Dosage: 1 DOSAGE FORM
  6. TAPAZOLE [Concomitant]
     Active Substance: METHIMAZOLE
     Dosage: 3 DOSAGE FORM, QD
  7. TAPAZOLE [Concomitant]
     Active Substance: METHIMAZOLE
     Dosage: 3 DOSAGE FORM
  8. AMIODARONE [Suspect]
     Active Substance: AMIODARONE
     Indication: ATRIAL FIBRILLATION
     Dosage: 100 MILLIGRAM, QD
     Route: 048
     Dates: start: 20181101, end: 20191101
  9. PLAUNAC [Concomitant]
     Active Substance: OLMESARTAN MEDOXOMIL
     Dosage: 40 MILLIGRAM, QD
  10. PLAUNAC [Concomitant]
     Active Substance: OLMESARTAN MEDOXOMIL
     Dosage: 40 MILLIGRAM
  11. ELIQUIS [Concomitant]
     Active Substance: APIXABAN
     Dosage: 2 DOSAGE FORM,
  12. ZYLORIC [Concomitant]
     Active Substance: ALLOPURINOL
     Dosage: 1 DOSAGE FORM, QD
  13. TAPAZOLE [Concomitant]
     Active Substance: METHIMAZOLE
     Dosage: 2 TABLETS / BID FOR 20 DAYS

REACTIONS (4)
  - Hyperthyroidism [Not Recovered/Not Resolved]
  - Liver disorder [Not Recovered/Not Resolved]
  - Drug ineffective [Not Recovered/Not Resolved]
  - Atrial fibrillation [Not Recovered/Not Resolved]

NARRATIVE: CASE EVENT DATE: 20191101
